FAERS Safety Report 9408374 (Version 1)
Quarter: 2013Q3

REPORT INFORMATION
  Report Type: Spontaneous
  Country: GB (occurrence: None)
  Receive Date: 20130716
  Receipt Date: 20130716
  Transmission Date: 20140515
  Serious: Yes (Other)
  Sender: FDA-Public Use
  Company Number: 1790861

PATIENT
  Age: 43 Year
  Sex: Female
  Weight: 40.33 kg

DRUGS (4)
  1. MIDAZOLAM [Suspect]
     Indication: ENDOSCOPY UPPER GASTROINTESTINAL TRACT
     Route: 051
  2. DICLOFENAC [Concomitant]
  3. (LANSOPRAZOLE) [Concomitant]
  4. (PARACETAMOL) [Concomitant]

REACTIONS (9)
  - Face oedema [None]
  - Eye swelling [None]
  - Hot flush [None]
  - Erythema [None]
  - Pain [None]
  - Exophthalmos [None]
  - Eyelid disorder [None]
  - Rash [None]
  - Rash macular [None]
